FAERS Safety Report 9333651 (Version 1)
Quarter: 2013Q2

REPORT INFORMATION
  Report Type: Spontaneous
  Country: US (occurrence: US)
  Receive Date: 20130606
  Receipt Date: 20130606
  Transmission Date: 20140414
  Serious: No
  Sender: FDA-Public Use
  Company Number: US-AMGEN-USASP2012077448

PATIENT
  Age: 76 Year
  Sex: Female
  Weight: 52.61 kg

DRUGS (18)
  1. PROLIA [Suspect]
     Indication: OSTEOPOROSIS POSTMENOPAUSAL
     Dosage: 60 MG, UNK
     Route: 058
     Dates: start: 20110503
  2. PROLIA [Suspect]
     Dosage: UNK
     Dates: start: 20111025
  3. PROLIA [Suspect]
     Dosage: UNK
     Dates: start: 20120502
  4. PROLIA [Suspect]
     Dosage: UNK
     Dates: start: 20121108
  5. PLAVIX [Concomitant]
     Dosage: 75 MG, QD
     Route: 048
  6. VITAMIN D3 [Concomitant]
     Dosage: 2000 IU, QD
     Route: 048
  7. ELIDEL [Concomitant]
     Indication: RASH
     Dosage: UNK UNK, PRN
     Route: 061
  8. LISINOPRIL [Concomitant]
     Indication: ESSENTIAL HYPERTENSION
     Dosage: 2.5 MG, QD
     Route: 048
  9. POTASSIUM CHLORIDE [Concomitant]
     Dosage: 20 MEQ, QD
     Route: 048
  10. ZETIA [Concomitant]
     Indication: SENILE OSTEOPOROSIS
     Dosage: 10 MG, QD
     Route: 048
  11. ALBUTEROL                          /00139501/ [Concomitant]
     Dosage: 90 MUG, Q6H
  12. SPIRONOLACTONE [Concomitant]
     Dosage: 25 MG, QD
     Route: 048
  13. FUROSEMIDE [Concomitant]
     Dosage: 20 MG, QD
     Route: 048
  14. SIMVASTATIN [Concomitant]
     Indication: SENILE OSTEOPOROSIS
     Dosage: 80 MG, QD
     Route: 048
  15. ALLEGRA [Concomitant]
     Dosage: 180 MG, QD
     Route: 048
     Dates: end: 20120502
  16. NORCO [Concomitant]
     Dosage: UNK UNK, PRN
     Route: 048
     Dates: end: 20120914
  17. PRILOSEC                           /00661201/ [Concomitant]
     Dosage: 20 MG, QD
     Route: 048
     Dates: end: 20120502
  18. VYTORIN [Concomitant]
     Dosage: UNK UNK, QD
     Route: 048
     Dates: end: 20110914

REACTIONS (3)
  - Bone density decreased [Unknown]
  - Drug ineffective [Unknown]
  - Blood calcium decreased [Unknown]
